FAERS Safety Report 9110298 (Version 1)
Quarter: 2013Q1

REPORT INFORMATION
  Report Type: Spontaneous
  Country: US (occurrence: US)
  Receive Date: 20130222
  Receipt Date: 20130222
  Transmission Date: 20140127
  Serious: Yes (Hospitalization, Other)
  Sender: FDA-Public Use
  Company Number: US-SANOFI-AVENTIS-2013SA016529

PATIENT
  Sex: Male

DRUGS (3)
  1. PLAVIX [Suspect]
     Dates: start: 2004
  2. COUMADIN [Concomitant]
     Dates: end: 20130123
  3. ASPIRIN [Concomitant]

REACTIONS (3)
  - Pulmonary embolism [Unknown]
  - Thrombosis [Not Recovered/Not Resolved]
  - Myocardial infarction [Unknown]
